FAERS Safety Report 13696003 (Version 3)
Quarter: 2017Q3

REPORT INFORMATION
  Report Type: Spontaneous
  Country: US (occurrence: US)
  Receive Date: 20170628
  Receipt Date: 20170728
  Transmission Date: 20171127
  Serious: No
  Sender: FDA-Public Use
  Company Number: US-ASTRAZENECA-2017SE66037

PATIENT
  Age: 27758 Day
  Sex: Male
  Weight: 113.4 kg

DRUGS (3)
  1. LANTUS [Concomitant]
     Active Substance: INSULIN GLARGINE
     Indication: DIABETES MELLITUS
     Dosage: 52 UNITS AT NIGHT
     Route: 058
  2. HUMALOG [Concomitant]
     Active Substance: INSULIN LISPRO
     Indication: PROPHYLAXIS
     Dosage: TWO TIMES A DAY (MORNING AND EVENING BEFORE MEALS)
     Route: 058
     Dates: start: 20170616
  3. BYDUREON [Suspect]
     Active Substance: EXENATIDE
     Indication: TYPE 2 DIABETES MELLITUS
     Route: 058
     Dates: start: 2015

REACTIONS (6)
  - Injection site pain [Recovered/Resolved]
  - Product quality issue [Unknown]
  - Injection site haemorrhage [Unknown]
  - Diabetes mellitus inadequate control [Unknown]
  - Wrong technique in product usage process [Unknown]
  - Product compounding quality issue [Unknown]

NARRATIVE: CASE EVENT DATE: 20170702
